FAERS Safety Report 9520762 (Version 2)
Quarter: 2014Q1

REPORT INFORMATION
  Report Type: Report from Study
  Country: DE (occurrence: DE)
  Receive Date: 20130913
  Receipt Date: 20140123
  Transmission Date: 20141002
  Serious: Yes (Hospitalization)
  Sender: FDA-Public Use
  Company Number: DE-ROCHE-1272750

PATIENT
  Age: 71 Year
  Sex: Male

DRUGS (1)
  1. VEMURAFENIB [Suspect]
     Indication: METASTATIC MALIGNANT MELANOMA
     Dosage: DATE OF LAST DOSE PRIOR TO SAE: 02/AUG/2013
     Route: 048
     Dates: start: 20130802

REACTIONS (1)
  - Infection [Recovered/Resolved]
